FAERS Safety Report 9903575 (Version 1)
Quarter: 2014Q1

REPORT INFORMATION
  Report Type: Spontaneous
  Country: JP (occurrence: JP)
  Receive Date: 20140217
  Receipt Date: 20140217
  Transmission Date: 20141002
  Serious: Yes (Disabling)
  Sender: FDA-Public Use
  Company Number: JP-BAUSCH-BL-2014-000762

PATIENT
  Age: 74 Year
  Sex: Female

DRUGS (16)
  1. BRONUCK OPHTHALMIC SOLUTION 0.1% [Suspect]
     Indication: POSTOPERATIVE CARE
     Dosage: 1 DROP TWICE DAILY IN BOTH EYES
     Route: 047
     Dates: start: 20120417, end: 20120731
  2. BRONUCK OPHTHALMIC SOLUTION 0.1% [Suspect]
     Dosage: 1 DROP TWICE DAILY IN BOTH EYES
     Route: 047
     Dates: start: 20120801
  3. LUMIGAN OPHTHALMIC SOLUTION 0.03% [Suspect]
     Indication: GLAUCOMA
     Dosage: 1 DROP ONCE DAILY IN BOTH EYES
     Route: 047
     Dates: start: 20110912, end: 20120411
  4. LUMIGAN OPHTHALMIC SOLUTION 0.03% [Suspect]
     Dosage: 1 DROP ONCE DAILY IN BOTH EYES
     Route: 047
     Dates: start: 20120829, end: 20121128
  5. LUMIGAN OPHTHALMIC SOLUTION 0.03% [Suspect]
     Dosage: 1 DROP ONCE DAILY IN BOTH EYES
     Route: 047
     Dates: start: 20110912, end: 20120725
  6. AZOPT [Concomitant]
     Indication: PRODUCT USED FOR UNKNOWN INDICATION
     Dosage: BOTH EYES
     Route: 047
     Dates: start: 20080925, end: 20120415
  7. TIMOPTOL [Concomitant]
     Indication: PRODUCT USED FOR UNKNOWN INDICATION
     Dosage: BOTH EYES
     Route: 047
     Dates: start: 20101213, end: 20120415
  8. COSOPT [Concomitant]
     Indication: PRODUCT USED FOR UNKNOWN INDICATION
     Dosage: BOTH EYES
     Route: 047
     Dates: start: 20120416, end: 20120810
  9. DICROD [Concomitant]
     Indication: PRODUCT USED FOR UNKNOWN INDICATION
     Dosage: RIGHT
     Route: 047
     Dates: start: 20120412, end: 20120416
  10. DICROD [Concomitant]
     Dosage: LEFT
     Route: 047
     Dates: start: 20120726, end: 20120731
  11. RINDERON-A [Concomitant]
     Indication: PRODUCT USED FOR UNKNOWN INDICATION
     Dosage: RIGHT
     Route: 047
     Dates: start: 20120412, end: 20120416
  12. RINDERON-A [Concomitant]
     Dosage: LEFT
     Route: 047
     Dates: start: 20120726, end: 20120731
  13. FLUMETHOLON [Concomitant]
     Indication: PRODUCT USED FOR UNKNOWN INDICATION
     Dosage: RIGHT
     Route: 047
     Dates: start: 20120417, end: 20120731
  14. FLUMETHOLON [Concomitant]
     Dosage: BOTH EYES
     Route: 047
     Dates: start: 20120801, end: 20120919
  15. CRAVIT [Concomitant]
     Indication: PRODUCT USED FOR UNKNOWN INDICATION
     Dosage: RIGHT
     Route: 047
     Dates: start: 20120412, end: 20120725
  16. CRAVIT [Concomitant]
     Dosage: BOTH EYES
     Route: 047
     Dates: start: 20120726, end: 20120912

REACTIONS (2)
  - Visual field defect [Unknown]
  - Punctate keratitis [Recovered/Resolved]
